FAERS Safety Report 25536203 (Version 2)
Quarter: 2025Q4

REPORT INFORMATION
  Report Type: Report from Study
  Country: US (occurrence: US)
  Receive Date: 20250709
  Receipt Date: 20251013
  Transmission Date: 20260117
  Serious: No
  Sender: TG THERAPEUTICS
  Company Number: US-TG THERAPEUTICS INC.-TGT005112

PATIENT

DRUGS (2)
  1. UBLITUXIMAB [Suspect]
     Active Substance: UBLITUXIMAB
     Indication: Multiple sclerosis
     Dosage: 150 MILLIGRAM
     Route: 042
     Dates: start: 20250424, end: 20250424
  2. UBLITUXIMAB [Suspect]
     Active Substance: UBLITUXIMAB
     Dosage: 450 MILLIGRAM
     Route: 042
     Dates: start: 20250508, end: 20250508

REACTIONS (6)
  - Infusion related reaction [Not Recovered/Not Resolved]
  - Blood thyroid stimulating hormone increased [Unknown]
  - Prostatic specific antigen increased [Unknown]
  - Visual impairment [Unknown]
  - Diplopia [Recovering/Resolving]
  - Nystagmus [Recovering/Resolving]

NARRATIVE: CASE EVENT DATE: 20250101
